FAERS Safety Report 5572469-0 (Version None)
Quarter: 2007Q4

REPORT INFORMATION
  Report Type: 
  Country: None (occurrence: None)
  Receive Date: 20071219
  Receipt Date: 20071211
  Transmission Date: 20080405
  Serious: No
  Sender: FDA-Public Use
  Company Number: 2007SP021109

PATIENT
  Age: 44 Year
  Sex: Female
  Weight: 57 kg

DRUGS (4)
  1. VIRAFERONPEG [Suspect]
     Indication: HEPATITIS C
     Dosage: 80 MCG;QW;SC
     Route: 058
     Dates: start: 20060401, end: 20061001
  2. REBETOL [Suspect]
     Indication: HEPATITIS C
     Dosage: 4 DF;QD;PO
     Route: 048
     Dates: start: 20060401, end: 20061001
  3. DOLIPRANE [Concomitant]
  4. IXEL [Concomitant]

REACTIONS (1)
  - PREMATURE MENOPAUSE [None]
